FAERS Safety Report 8580207-2 (Version None)
Quarter: 2012Q3

REPORT INFORMATION
  Report Type: 
  Country: None (occurrence: None)
  Receive Date: 20120808
  Receipt Date: 20071106
  Transmission Date: 20120928
  Serious: Yes (Other)
  Sender: FDA-Public Use
  Company Number: CO-PFIZER INC-2012190957

PATIENT
  Age: 73 Year
  Sex: Female

DRUGS (3)
  1. VERAPAMIL [Concomitant]
     Dosage: 120 MG, 2X/DAY
  2. LIPITOR [Suspect]
     Dosage: 10 MG EVERY 24 HOURS
  3. HYDROCHLOROTHIAZIDE [Concomitant]
     Dosage: 25 MG, ONCE DAILY

REACTIONS (3)
  - CARDIAC DISORDER [None]
  - TOBACCO ABUSE [None]
  - TREMOR [None]
